FAERS Safety Report 10777258 (Version 1)
Quarter: 2015Q1

REPORT INFORMATION
  Report Type: Spontaneous
  Country: US (occurrence: None)
  Receive Date: 20150206
  Receipt Date: 20150206
  Transmission Date: 20150721
  Serious: Yes (Disabling)
  Sender: FDA-Public Use
  Company Number: None

PATIENT
  Age: 59 Year
  Sex: Female
  Weight: 81.65 kg

DRUGS (1)
  1. CIPROFLOXACIN. [Suspect]
     Active Substance: CIPROFLOXACIN
     Indication: URINARY TRACT INFECTION
     Dates: start: 20140804, end: 20140814

REACTIONS (12)
  - Myalgia [None]
  - Gastrointestinal disorder [None]
  - Paranoia [None]
  - Gait disturbance [None]
  - Hypoaesthesia [None]
  - Balance disorder [None]
  - Pain [None]
  - Arthralgia [None]
  - Anxiety [None]
  - Paraesthesia [None]
  - Fall [None]
  - Ligament pain [None]

NARRATIVE: CASE EVENT DATE: 20140804
